FAERS Safety Report 5485101-1 (Version None)
Quarter: 2007Q4

REPORT INFORMATION
  Report Type: 
  Country: None (occurrence: None)
  Receive Date: 20071009
  Receipt Date: 20071009
  Transmission Date: 20080405
  Serious: Yes (Disabling)
  Sender: FDA-Public Use
  Company Number: None

PATIENT
  Age: 58 Year
  Sex: Female
  Weight: 61.2356 kg

DRUGS (2)
  1. PHENTERMINE 37.5 (GENERIC) [Suspect]
     Indication: WEIGHT CONTROL
     Dosage: 37.5 TID P.O. } 5 YRS
     Route: 048
  2. OXYCONTIN [Suspect]
     Indication: PAIN
     Dosage: 160 MG TID P.O. } 5 YRS
     Route: 048

REACTIONS (1)
  - DYSARTHRIA [None]
